FAERS Safety Report 8348039-8 (Version None)
Quarter: 2012Q2

REPORT INFORMATION
  Report Type: 
  Country: None (occurrence: None)
  Receive Date: 20120509
  Receipt Date: 20120425
  Transmission Date: 20120825
  Serious: Yes (Hospitalization)
  Sender: FDA-Public Use
  Company Number: ES-NAPPMUNDI-GBR-2012-0010527

PATIENT
  Age: 55 Year
  Sex: Female

DRUGS (11)
  1. OMEPRAZOLE [Concomitant]
     Indication: PROPHYLAXIS
     Dosage: 20 MG, DAILY
     Route: 048
     Dates: start: 20100201, end: 20110612
  2. IBUPROFEN [Concomitant]
     Indication: PAIN
     Dosage: 600 MG, DAILY
     Route: 048
  3. SEVREDOL 10, COMPRIMIDOS [Suspect]
     Indication: PAIN
     Dosage: 10 MG, UNK
     Route: 048
     Dates: end: 20110612
  4. ALPRAZOLAM [Interacting]
     Indication: ANXIETY
     Dosage: 1 MG, DAILY
     Route: 048
     Dates: start: 20080701, end: 20110612
  5. BUDESONIDE [Concomitant]
  6. OPTOVITE B12 [Concomitant]
  7. DURAGESIC-100 [Interacting]
     Indication: PAIN
     Dosage: 50 MCG, UNK
     Route: 062
     Dates: end: 20110613
  8. ACFOL [Concomitant]
  9. ALMAX [Concomitant]
  10. ROMILAR                            /00048102/ [Concomitant]
  11. CELEBREX [Concomitant]
     Dosage: 200 MG, UNK
     Route: 048
     Dates: start: 20100201, end: 20110612

REACTIONS (3)
  - DRUG INTERACTION [None]
  - DEPRESSED LEVEL OF CONSCIOUSNESS [None]
  - RESPIRATORY DEPRESSION [None]
